FAERS Safety Report 5196675-2 (Version None)
Quarter: 2007Q1

REPORT INFORMATION
  Report Type: 
  Country: None (occurrence: None)
  Receive Date: 20070103
  Receipt Date: 20061227
  Transmission Date: 20070707
  Serious: Yes (Other)
  Sender: FDA-Public Use
  Company Number: PHNU2006DE04275

PATIENT
  Sex: Female

DRUGS (9)
  1. ZYPREXA [Suspect]
     Dosage: 5 MG/D
     Route: 048
     Dates: start: 20041018, end: 20041101
  2. ZYPREXA [Suspect]
     Dosage: 10 MG/D
     Route: 048
     Dates: start: 20041102, end: 20041206
  3. ZYPREXA [Suspect]
     Dosage: 15 MG/D
     Route: 048
     Dates: start: 20041207, end: 20041214
  4. ZYPREXA [Suspect]
     Dosage: 10 MG/D
     Route: 048
     Dates: start: 20041215, end: 20041227
  5. ZYPREXA [Suspect]
     Dosage: 5 MG/D
     Route: 048
     Dates: start: 20041228, end: 20050102
  6. MOVICOL [Concomitant]
     Dosage: 2 SACHETS
     Dates: start: 20041020
  7. TEGRETOL [Suspect]
     Indication: EPILEPSY
     Dosage: 100 MG/D
     Route: 048
     Dates: start: 20041013, end: 20041014
  8. TEGRETOL [Suspect]
     Dosage: 200 MG/D
     Route: 048
     Dates: start: 20041015, end: 20041016
  9. TEGRETOL [Suspect]
     Dosage: 400 MG/D
     Route: 048
     Dates: start: 20041017

REACTIONS (3)
  - BODY MASS INDEX INCREASED [None]
  - SEDATION [None]
  - WEIGHT INCREASED [None]
